FAERS Safety Report 17212233 (Version 2)
Quarter: 2020Q1

REPORT INFORMATION
  Report Type: Report from Study
  Country: US (occurrence: US)
  Receive Date: 20191230
  Receipt Date: 20200218
  Transmission Date: 20200409
  Serious: Yes (Hospitalization)
  Sender: FDA-Public Use
  Company Number: NVSC2019US080971

PATIENT
  Sex: Male

DRUGS (4)
  1. TASIGNA [Suspect]
     Active Substance: NILOTINIB
     Dosage: 800 MG
     Route: 048
  2. SPRYCEL [Suspect]
     Active Substance: DASATINIB
     Indication: PRODUCT USED FOR UNKNOWN INDICATION
     Route: 065
  3. TASIGNA [Suspect]
     Active Substance: NILOTINIB
     Indication: WHITE BLOOD CELL COUNT INCREASED
     Dosage: 400 MG
     Route: 048
  4. TASIGNA [Suspect]
     Active Substance: NILOTINIB
     Indication: CHRONIC MYELOID LEUKAEMIA
     Dosage: 200 MG, ONCE4SDO
     Route: 048
     Dates: start: 20191105

REACTIONS (7)
  - Appetite disorder [Unknown]
  - Pleural effusion [Unknown]
  - Amino acid level increased [Not Recovered/Not Resolved]
  - Chills [Unknown]
  - Dyspnoea [Unknown]
  - Headache [Unknown]
  - Pyrexia [Unknown]
